FAERS Safety Report 25713669 (Version 1)
Quarter: 2025Q3

REPORT INFORMATION
  Report Type: Spontaneous
  Country: US (occurrence: US)
  Receive Date: 20250822
  Receipt Date: 20250822
  Transmission Date: 20251021
  Serious: No
  Sender: LEO PHARM
  Company Number: US-LEO Pharma-382266

PATIENT
  Age: 69 Year
  Sex: Female

DRUGS (1)
  1. ADBRY [Suspect]
     Active Substance: TRALOKINUMAB-LDRM
     Indication: Dermatitis atopic
     Dosage: TREATMENT IS ONGOING
     Route: 058

REACTIONS (2)
  - Nasopharyngitis [Unknown]
  - Influenza like illness [Unknown]
